FAERS Safety Report 4484294-2 (Version None)
Quarter: 2004Q4

REPORT INFORMATION
  Report Type: 
  Country: None (occurrence: None)
  Receive Date: 20041025
  Receipt Date: 20041014
  Transmission Date: 20050328
  Serious: Yes (Other)
  Sender: FDA-Public Use
  Company Number: US-JNJFOC-20041004690

PATIENT
  Age: 70 Year
  Sex: Female

DRUGS (6)
  1. DURAGESIC [Suspect]
     Route: 062
  2. DURAGESIC [Suspect]
     Route: 062
  3. ISORDIL [Concomitant]
     Indication: BLOOD PRESSURE
     Route: 049
  4. CLONOPIN [Concomitant]
     Indication: BLOOD PRESSURE
     Dosage: 1-2 MG
     Route: 049
  5. LORTAB [Concomitant]
     Route: 049
  6. LORTAB [Concomitant]
     Route: 049

REACTIONS (4)
  - ACCIDENTAL OVERDOSE [None]
  - CONFUSIONAL STATE [None]
  - DEPRESSED LEVEL OF CONSCIOUSNESS [None]
  - MEDICATION ERROR [None]
